FAERS Safety Report 8547045-8 (Version None)
Quarter: 2012Q3

REPORT INFORMATION
  Report Type: 
  Country: None (occurrence: None)
  Receive Date: 20120727
  Receipt Date: 20120313
  Transmission Date: 20120928
  Serious: No
  Sender: FDA-Public Use
  Company Number: US-ASTRAZENECA-2012SE17368

PATIENT
  Age: 54 Year
  Sex: Male
  Weight: 117.9 kg

DRUGS (15)
  1. TEMAZEPAM [Concomitant]
  2. TOPAMAX [Concomitant]
  3. VITAMIN B12 SUPPLEMENT [Concomitant]
  4. SEROQUEL [Suspect]
     Indication: HALLUCINATION
     Route: 048
  5. DIVALPROEX SODIUM [Concomitant]
  6. HYDROCODONE BITARTRATE [Concomitant]
     Indication: PAIN
  7. SEROQUEL [Suspect]
     Indication: ABNORMAL DREAMS
     Route: 048
  8. TIAZIDINE [Concomitant]
     Indication: MUSCLE SPASMS
  9. ROZEREM [Concomitant]
  10. CALCIUM [Concomitant]
  11. SEROQUEL [Suspect]
     Indication: SLEEP DISORDER
     Route: 048
  12. ATENOLOL [Concomitant]
     Indication: ANTICOAGULANT THERAPY
  13. WELLBUTRIN [Concomitant]
  14. FIBERCROM [Concomitant]
  15. CYMBALTA [Concomitant]

REACTIONS (8)
  - MEMORY IMPAIRMENT [None]
  - MOOD SWINGS [None]
  - PARAESTHESIA [None]
  - WITHDRAWAL SYNDROME [None]
  - ABNORMAL DREAMS [None]
  - INSOMNIA [None]
  - CHILLS [None]
  - DRUG DOSE OMISSION [None]
